FAERS Safety Report 19351585 (Version 4)
Quarter: 2021Q2

REPORT INFORMATION
  Report Type: Spontaneous
  Country: US (occurrence: US)
  Receive Date: 20210531
  Receipt Date: 20210622
  Transmission Date: 20210717
  Serious: Yes (Other)
  Sender: FDA-Public Use
  Company Number: US-ABBVIE-21K-163-3924201-00

PATIENT
  Age: 72 Year
  Sex: Male
  Weight: 79.45 kg

DRUGS (10)
  1. ELDERBERRY [Concomitant]
     Active Substance: HERBALS
     Indication: SUPPLEMENTATION THERAPY
  2. ZOLOFT [Suspect]
     Active Substance: SERTRALINE HYDROCHLORIDE
     Indication: BIPOLAR DISORDER
  3. VITAMIN D3 [Concomitant]
     Active Substance: CHOLECALCIFEROL
     Indication: SUPPLEMENTATION THERAPY
  4. ESCITALOPRAM OXALATE. [Concomitant]
     Active Substance: ESCITALOPRAM OXALATE
     Indication: PRODUCT USED FOR UNKNOWN INDICATION
  5. ZINC. [Concomitant]
     Active Substance: ZINC
     Indication: SUPPLEMENTATION THERAPY
  6. ZOLOFT [Suspect]
     Active Substance: SERTRALINE HYDROCHLORIDE
     Indication: BIPOLAR I DISORDER
     Route: 065
  7. LIPOSOMAL VITAMIN C [Concomitant]
     Indication: SUPPLEMENTATION THERAPY
  8. DEPAKOTE ER [Suspect]
     Active Substance: DIVALPROEX SODIUM
     Indication: BIPOLAR I DISORDER
     Dosage: 2 TABLETS OF 500 MG AND HALF TABLET OF 500 MG
     Route: 048
     Dates: start: 1999, end: 2008
  9. DEPAKOTE ER [Suspect]
     Active Substance: DIVALPROEX SODIUM
     Indication: BIPOLAR DISORDER
     Dosage: 3 TABLETS A DAY
     Route: 048
     Dates: start: 2008, end: 2016
  10. SILVER BIOTICS [Concomitant]
     Indication: SUPPLEMENTATION THERAPY

REACTIONS (36)
  - Intervertebral disc protrusion [Not Recovered/Not Resolved]
  - Serotonin syndrome [Not Recovered/Not Resolved]
  - Nail discolouration [Recovered/Resolved]
  - Insomnia [Recovered/Resolved]
  - Somnolence [Recovered/Resolved]
  - Dysstasia [Not Recovered/Not Resolved]
  - Tremor [Recovered/Resolved]
  - Thinking abnormal [Not Recovered/Not Resolved]
  - Platelet count decreased [Recovered/Resolved]
  - Feeling abnormal [Recovered/Resolved]
  - Nail disorder [Recovering/Resolving]
  - Fall [Recovered/Resolved]
  - Tinnitus [Not Recovered/Not Resolved]
  - Hypertension [Recovered/Resolved]
  - Gait disturbance [Not Recovered/Not Resolved]
  - Deafness [Not Recovered/Not Resolved]
  - Anger [Recovered/Resolved]
  - Amnesia [Not Recovered/Not Resolved]
  - Swelling [Not Recovered/Not Resolved]
  - COVID-19 [Recovered/Resolved]
  - Dupuytren^s contracture [Recovered/Resolved]
  - Pain [Recovering/Resolving]
  - Body height decreased [Not Recovered/Not Resolved]
  - Vision blurred [Not Recovered/Not Resolved]
  - Gingival bleeding [Not Recovered/Not Resolved]
  - Disturbance in attention [Not Recovered/Not Resolved]
  - Weight increased [Recovering/Resolving]
  - Erectile dysfunction [Recovered/Resolved]
  - Dizziness [Recovered/Resolved]
  - Sciatica [Not Recovered/Not Resolved]
  - Suicidal ideation [Not Recovered/Not Resolved]
  - Diabetes mellitus [Recovered/Resolved]
  - Osteoarthritis [Not Recovered/Not Resolved]
  - Drug hypersensitivity [Not Recovered/Not Resolved]
  - Skin ulcer [Not Recovered/Not Resolved]
  - Asthenia [Recovered/Resolved]

NARRATIVE: CASE EVENT DATE: 2006
